FAERS Safety Report 11473935 (Version 1)
Quarter: 2015Q3

REPORT INFORMATION
  Report Type: Spontaneous
  Country: US (occurrence: US)
  Receive Date: 20150908
  Receipt Date: 20150908
  Transmission Date: 20151125
  Serious: No
  Sender: FDA-Public Use
  Company Number: US-JAZZ-2013-US-001859

PATIENT
  Age: 51 Year
  Sex: Female

DRUGS (7)
  1. TOFRANIL [Concomitant]
     Active Substance: IMIPRAMINE HYDROCHLORIDE
     Indication: NARCOLEPSY
     Route: 048
  2. XYREM [Suspect]
     Active Substance: SODIUM OXYBATE
     Dosage: 4.5 G, BID
     Route: 048
     Dates: start: 201202, end: 201203
  3. XYREM [Suspect]
     Active Substance: SODIUM OXYBATE
     Dosage: 6 G FIRST DOSE
     Route: 048
     Dates: start: 201203
  4. XYREM [Suspect]
     Active Substance: SODIUM OXYBATE
     Dosage: 5 SECOND DOSE
     Route: 048
     Dates: start: 201203
  5. XYREM [Suspect]
     Active Substance: SODIUM OXYBATE
     Indication: SOMNOLENCE
     Dosage: 6 G FIRST DOSE
     Route: 048
     Dates: start: 200911, end: 201202
  6. XYREM [Suspect]
     Active Substance: SODIUM OXYBATE
     Indication: NARCOLEPSY
     Dosage: 4.5 G, BID
     Route: 048
     Dates: start: 200705
  7. XYREM [Suspect]
     Active Substance: SODIUM OXYBATE
     Dosage: 5 G SECOND DOSE
     Route: 048
     Dates: start: 200911, end: 201202

REACTIONS (3)
  - Prescribed overdose [Unknown]
  - Abdominal mass [Unknown]
  - Salpingo-oophorectomy unilateral [Unknown]

NARRATIVE: CASE EVENT DATE: 201203
